FAERS Safety Report 4287449-5 (Version None)
Quarter: 2004Q1

REPORT INFORMATION
  Report Type: 
  Country: None (occurrence: None)
  Receive Date: 20040205
  Receipt Date: 20040121
  Transmission Date: 20041129
  Serious: Yes (Life-Threatening, Other)
  Sender: FDA-Public Use
  Company Number: USA020921198

PATIENT
  Age: 55 Year
  Sex: Female

DRUGS (5)
  1. HUMALOG [Suspect]
     Indication: DIABETES MELLITUS
     Dates: start: 20000101
  2. HUMULIN N [Suspect]
     Indication: DIABETES MELLITUS
     Dosage: 70 U/DAY
     Dates: start: 19940101
  3. HUMULIN R [Suspect]
     Indication: DIABETES MELLITUS
     Dates: start: 19940101
  4. PREDNISONE [Concomitant]
  5. GLUCOPHAGE [Concomitant]

REACTIONS (11)
  - ANGIOPATHY [None]
  - ARTHRALGIA [None]
  - ARTHRITIS [None]
  - BURSITIS [None]
  - DEPRESSION [None]
  - FALL [None]
  - HIATUS HERNIA [None]
  - JOINT INJURY [None]
  - NECROSIS [None]
  - NERVE INJURY [None]
  - RESPIRATORY ARREST [None]
